FAERS Safety Report 16241394 (Version 1)
Quarter: 2019Q2

REPORT INFORMATION
  Report Type: Spontaneous
  Country: NL (occurrence: NL)
  Receive Date: 20190426
  Receipt Date: 20190426
  Transmission Date: 20190711
  Serious: Yes (Death, Other)
  Sender: FDA-Public Use
  Company Number: NL-AUROBINDO-AUR-APL-2019-022663

PATIENT

DRUGS (1)
  1. SILDENAFIL FILM COATED TABLETS 100MG [Suspect]
     Active Substance: SILDENAFIL
     Indication: ERECTILE DYSFUNCTION
     Dosage: 1 DOSAGE FORM, (1 X 0.5 TO 1 TABLET DAILY)
     Route: 048
     Dates: start: 20181012

REACTIONS (1)
  - Death [Fatal]

NARRATIVE: CASE EVENT DATE: 20181012
